FAERS Safety Report 5130091-4 (Version None)
Quarter: 2006Q4

REPORT INFORMATION
  Report Type: 
  Country: None (occurrence: None)
  Receive Date: 20061013
  Receipt Date: 20061004
  Transmission Date: 20070319
  Serious: Yes (Hospitalization)
  Sender: FDA-Public Use
  Company Number: S06-FRA-01578-01

PATIENT
  Age: 65 Year
  Sex: Male

DRUGS (3)
  1. EBIXA (MEMANTINE) [Suspect]
     Indication: DEMENTIA ALZHEIMER'S TYPE
     Dosage: 10 MG BID PO
     Route: 048
     Dates: end: 20060412
  2. RISPERDAL [Suspect]
     Dosage: 1 MG QD PO
     Route: 048
  3. RISPERDAL [Suspect]
     Dosage: 2 MG QD PO
     Route: 048
     Dates: end: 20060412

REACTIONS (19)
  - AGGRESSION [None]
  - ALANINE AMINOTRANSFERASE INCREASED [None]
  - ASPARTATE AMINOTRANSFERASE INCREASED [None]
  - ATRIOVENTRICULAR BLOCK THIRD DEGREE [None]
  - BRADYCARDIA [None]
  - HYPOTENSION [None]
  - HYPOTHERMIA [None]
  - LUNG DISORDER [None]
  - OLIGURIA [None]
  - OXYGEN SATURATION ABNORMAL [None]
  - PANCREATITIS [None]
  - PLATELET COUNT ABNORMAL [None]
  - PLEURAL EFFUSION [None]
  - PROTHROMBIN TIME PROLONGED [None]
  - SEPTIC SHOCK [None]
  - SKIN EROSION [None]
  - SKIN LESION [None]
  - SKIN SWELLING [None]
  - TRI-IODOTHYRONINE FREE DECREASED [None]
